FAERS Safety Report 11361659 (Version 1)
Quarter: 2015Q3

REPORT INFORMATION
  Report Type: Report from Study
  Country: CO (occurrence: CO)
  Receive Date: 20150810
  Receipt Date: 20150810
  Transmission Date: 20151125
  Serious: Yes (Death)
  Sender: FDA-Public Use
  Company Number: CO-ABBVIE-15K-036-1417002-00

PATIENT
  Age: 58 Year
  Sex: Male
  Weight: 50 kg

DRUGS (1)
  1. HUMIRA [Suspect]
     Active Substance: ADALIMUMAB
     Indication: CROHN^S DISEASE
     Route: 058
     Dates: start: 20140212, end: 20150610

REACTIONS (4)
  - Oedema peripheral [Fatal]
  - Face oedema [Fatal]
  - Crohn^s disease [Fatal]
  - Pyrexia [Fatal]

NARRATIVE: CASE EVENT DATE: 20150620
